FAERS Safety Report 23416354 (Version 1)
Quarter: 2024Q1

REPORT INFORMATION
  Report Type: Other
  Country: None (occurrence: CA)
  Receive Date: 20240118
  Receipt Date: 20240118
  Transmission Date: 20240410
  Serious: Yes (Other)
  Sender: FDA-Public Use
  Company Number: CA-Creekwood Pharmaceuticals LLC-2151506

PATIENT
  Age: 60 Year
  Sex: Male

DRUGS (10)
  1. PREGABALIN [Suspect]
     Active Substance: PREGABALIN
     Indication: Neuropathic pruritus
     Route: 065
  2. HYDROXYZINE [Suspect]
     Active Substance: HYDROXYZINE HYDROCHLORIDE
     Route: 065
  3. VENLAFAXINE [Suspect]
     Active Substance: VENLAFAXINE HYDROCHLORIDE
     Route: 065
  4. NORTRIPTYLINE HYDROCHLORIDE [Suspect]
     Active Substance: NORTRIPTYLINE HYDROCHLORIDE
     Route: 065
  5. MIRTAZAPINE [Suspect]
     Active Substance: MIRTAZAPINE
     Route: 065
  6. MENTHOL [Concomitant]
     Active Substance: MENTHOL
     Route: 061
  7. CAMPHOR (CAMPHOR (NATURAL)) [Concomitant]
     Active Substance: CAMPHOR (NATURAL)
     Route: 061
  8. CAPSAICIN [Concomitant]
     Active Substance: CAPSAICIN
     Route: 061
  9. MEXILETINE HCL [Concomitant]
     Active Substance: MEXILETINE HYDROCHLORIDE
     Route: 065
  10. METHADONE [Concomitant]
     Active Substance: METHADONE HYDROCHLORIDE
     Route: 065

REACTIONS (3)
  - Anticholinergic syndrome [Unknown]
  - Sedation [Recovered/Resolved]
  - Product use in unapproved indication [Unknown]
